FAERS Safety Report 9841683 (Version 1)
Quarter: 2013Q4

REPORT INFORMATION
  Report Type: Spontaneous
  Country: US (occurrence: None)
  Receive Date: 20131223
  Receipt Date: 20131223
  Transmission Date: 20140711
  Serious: Yes (Other)
  Sender: FDA-Public Use
  Company Number: 217502LEO

PATIENT
  Age: 63 Year
  Sex: Female
  Weight: 80.9 kg

DRUGS (2)
  1. PICATO (0.05 %, GEL) [Suspect]
     Indication: ACTINIC KERATOSIS
     Dosage: (1 IN 1 D), TOPICAL
     Route: 061
  2. CRESTOR (ROSUVASTATIN) [Concomitant]

REACTIONS (3)
  - Application site pain [None]
  - Application site vesicles [None]
  - Wound secretion [None]
